FAERS Safety Report 18509418 (Version 1)
Quarter: 2020Q4

REPORT INFORMATION
  Report Type: Spontaneous
  Country: FR (occurrence: FR)
  Receive Date: 20201117
  Receipt Date: 20201117
  Transmission Date: 20210114
  Serious: Yes (Other)
  Sender: FDA-Public Use
  Company Number: FR-SA-2020SA316349

PATIENT

DRUGS (1)
  1. RIFATER [Suspect]
     Active Substance: ISONIAZID\PYRAZINAMIDE\RIFAMPIN
     Dosage: 5 DF, QD

REACTIONS (4)
  - Lymph node tuberculosis [Unknown]
  - Liver disorder [Unknown]
  - Back pain [Unknown]
  - Fatigue [Unknown]
